FAERS Safety Report 7448276-0 (Version None)
Quarter: 2011Q2

REPORT INFORMATION
  Report Type: 
  Country: None (occurrence: None)
  Receive Date: 20110429
  Receipt Date: 20110425
  Transmission Date: 20111010
  Serious: Yes (Death, Hospitalization)
  Sender: FDA-Public Use
  Company Number: US-ASTRAZENECA-2011SE13071

PATIENT
  Sex: Female

DRUGS (6)
  1. TRAZODONE HCL [Concomitant]
  2. ENALAPRIL [Concomitant]
  3. PROZAC [Concomitant]
  4. SEROQUEL [Suspect]
     Route: 048
  5. METFORMIN [Concomitant]
  6. GLYBURIDE [Concomitant]

REACTIONS (2)
  - CHOLECYSTECTOMY [None]
  - PANCREATIC NEOPLASM [None]
